FAERS Safety Report 9167177 (Version 1)
Quarter: 2013Q1

REPORT INFORMATION
  Report Type: Spontaneous
  Country: US (occurrence: None)
  Receive Date: 20130314
  Receipt Date: 20130314
  Transmission Date: 20140127
  Serious: Yes (Other)
  Sender: FDA-Public Use
  Company Number: None

PATIENT
  Age: 72 Year
  Sex: Female
  Weight: 69.85 kg

DRUGS (7)
  1. FLUOROURACIL [Suspect]
     Indication: ACTINIC KERATOSIS
     Dosage: FLUOROURACIL 5% CREAM  BID  TOPICAL
     Route: 061
     Dates: start: 20130128, end: 20130201
  2. COUMADIN [Concomitant]
  3. PRAVASTATIN [Concomitant]
  4. DICLOFENAC [Concomitant]
  5. DENAVIR [Concomitant]
  6. ASPIRIN [Concomitant]
  7. CALCIUM / VIT D-3 [Concomitant]

REACTIONS (5)
  - Chest pain [None]
  - Abdominal pain [None]
  - Dyspnoea [None]
  - Palpitations [None]
  - Asthenia [None]
